FAERS Safety Report 16810362 (Version 2)
Quarter: 2022Q1

REPORT INFORMATION
  Report Type: Spontaneous
  Country: CH (occurrence: CH)
  Receive Date: 20190916
  Receipt Date: 20220203
  Transmission Date: 20220423
  Serious: Yes (Other)
  Sender: FDA-Public Use
  Company Number: CH-SM-2019-16252

PATIENT
  Age: 76 Year
  Sex: Male

DRUGS (13)
  1. TORSEMIDE [Suspect]
     Active Substance: TORSEMIDE
     Route: 048
     Dates: start: 20180705
  2. LINAGLIPTIN [Suspect]
     Active Substance: LINAGLIPTIN
     Route: 048
     Dates: start: 20180410
  3. LISINOPRIL [Suspect]
     Active Substance: LISINOPRIL
     Route: 048
     Dates: start: 20180323
  4. RISPERDAL [Suspect]
     Active Substance: RISPERIDONE
     Route: 048
     Dates: start: 20180611, end: 20190819
  5. TORSEMIDE [Suspect]
     Active Substance: TORSEMIDE
     Route: 048
     Dates: start: 20180321
  6. TIMOLOL MALEATE\TRAVOPROST [Suspect]
     Active Substance: TIMOLOL MALEATE\TRAVOPROST
     Route: 048
     Dates: start: 20180323
  7. TRAZODONE HYDROCHLORIDE [Suspect]
     Active Substance: TRAZODONE HYDROCHLORIDE
     Route: 048
     Dates: start: 20180410
  8. ESOMEPRAZOLE [Suspect]
     Active Substance: ESOMEPRAZOLE
     Route: 048
     Dates: start: 20180510
  9. METOPROLOL SUCCINATE [Suspect]
     Active Substance: METOPROLOL SUCCINATE
     Route: 048
     Dates: start: 20180525
  10. ASPIRIN [Suspect]
     Active Substance: ASPIRIN
     Route: 048
     Dates: start: 20180823
  11. ISOPHANE INSULIN [Suspect]
     Active Substance: INSULIN NOS
     Route: 048
     Dates: start: 20190324
  12. DAFALGAN [Suspect]
     Active Substance: ACETAMINOPHEN
     Dosage: MAX 4X/DAY ; AS NECESSARY
     Dates: start: 20180321, end: 20190827
  13. NOVORAPID [Suspect]
     Active Substance: INSULIN ASPART
     Dosage: AS NECESSARY
     Dates: start: 20180327

REACTIONS (1)
  - Pemphigoid [Not Recovered/Not Resolved]

NARRATIVE: CASE EVENT DATE: 20190819
